FAERS Safety Report 7575510-9 (Version None)
Quarter: 2011Q2

REPORT INFORMATION
  Report Type: 
  Country: None (occurrence: None)
  Receive Date: 20110627
  Receipt Date: 20110615
  Transmission Date: 20111010
  Serious: Yes (Other)
  Sender: FDA-Public Use
  Company Number: US-ELI_LILLY_AND_COMPANY-US201106004722

PATIENT
  Age: 51 Year
  Sex: Female

DRUGS (3)
  1. BYETTA [Suspect]
     Indication: TYPE 2 DIABETES MELLITUS
     Dosage: 5 UG, BID
     Route: 058
  2. GLIMEPIRIDE [Concomitant]
     Dosage: UNK
  3. METFORMIN HCL [Concomitant]
     Dosage: UNK

REACTIONS (1)
  - HEPATIC STEATOSIS [None]
